FAERS Safety Report 20908575 (Version 1)
Quarter: 2022Q2

REPORT INFORMATION
  Report Type: Spontaneous
  Country: US (occurrence: US)
  Receive Date: 20220603
  Receipt Date: 20220603
  Transmission Date: 20220721
  Serious: Yes (Other)
  Sender: FDA-Public Use
  Company Number: US-MLMSERVICE-20220419-3505674-1

PATIENT
  Age: 6 Year
  Sex: Male

DRUGS (11)
  1. TAMOXIFEN [Suspect]
     Active Substance: TAMOXIFEN
     Indication: Atypical teratoid/rhabdoid tumour of CNS
     Dosage: 60 MILLIGRAM, TWO TIMES A DAY (HIGH-DOSE)
     Route: 065
  2. TAMOXIFEN [Suspect]
     Active Substance: TAMOXIFEN
     Dosage: UNK (TAPERED OVER 4 MONTHS WITH A CUMULATIVE DOSE OF OVER 80 GRAMS)
     Route: 065
  3. TAMOXIFEN [Suspect]
     Active Substance: TAMOXIFEN
     Dosage: 100 MILLIGRAM/SQ. METER (PER DOSE)
     Route: 065
  4. DOXORUBICIN [Concomitant]
     Active Substance: DOXORUBICIN
     Indication: Atypical teratoid/rhabdoid tumour of CNS
     Dosage: UNK
     Route: 065
  5. CYTARABINE [Concomitant]
     Active Substance: CYTARABINE
     Indication: Atypical teratoid/rhabdoid tumour of CNS
     Dosage: UNK
     Route: 065
  6. CISPLATIN [Concomitant]
     Active Substance: CISPLATIN
     Indication: Atypical teratoid/rhabdoid tumour of CNS
     Dosage: UNK
     Route: 065
  7. DACTINOMYCIN [Concomitant]
     Active Substance: DACTINOMYCIN
     Indication: Atypical teratoid/rhabdoid tumour of CNS
     Dosage: UNK
     Route: 065
  8. TEMOZOLOMIDE [Concomitant]
     Active Substance: TEMOZOLOMIDE
     Indication: Atypical teratoid/rhabdoid tumour of CNS
     Dosage: UNK
     Route: 065
  9. METHOTREXATE [Concomitant]
     Active Substance: METHOTREXATE
     Indication: Atypical teratoid/rhabdoid tumour of CNS
     Dosage: UNK
     Route: 065
  10. ETOPOSIDE [Concomitant]
     Active Substance: ETOPOSIDE
     Indication: Atypical teratoid/rhabdoid tumour of CNS
     Dosage: UNK
     Route: 065
  11. CYCLOPHOSPHAMIDE [Concomitant]
     Active Substance: CYCLOPHOSPHAMIDE
     Indication: Atypical teratoid/rhabdoid tumour of CNS
     Dosage: UNK
     Route: 065

REACTIONS (2)
  - Retinopathy [Unknown]
  - Product use in unapproved indication [Unknown]
